FAERS Safety Report 12488831 (Version 2)
Quarter: 2016Q2

REPORT INFORMATION
  Report Type: Spontaneous
  Country: TR (occurrence: TR)
  Receive Date: 20160622
  Receipt Date: 20160624
  Transmission Date: 20160815
  Serious: Yes (Other)
  Sender: FDA-Public Use
  Company Number: TR-PFIZER INC-2016305174

PATIENT
  Age: 47 Year
  Sex: Male

DRUGS (1)
  1. XALKORI [Suspect]
     Active Substance: CRIZOTINIB
     Indication: LUNG CANCER METASTATIC
     Dosage: UNK
     Dates: start: 201310

REACTIONS (11)
  - Fatigue [Unknown]
  - Cough [Unknown]
  - Asthenia [Unknown]
  - Acute myocardial infarction [Unknown]
  - Oedema peripheral [Unknown]
  - Eye disorder [Recovered/Resolved]
  - Rash [Recovered/Resolved]
  - Diarrhoea [Unknown]
  - Hypoaesthesia [Unknown]
  - Musculoskeletal discomfort [Unknown]
  - Peripheral swelling [Unknown]

NARRATIVE: CASE EVENT DATE: 201403
